FAERS Safety Report 5689982-8 (Version None)
Quarter: 2008Q2

REPORT INFORMATION
  Report Type: 
  Country: None (occurrence: None)
  Receive Date: 20080401
  Receipt Date: 20070607
  Transmission Date: 20081010
  Serious: No
  Sender: FDA-Public Use
  Company Number: A0654640A

PATIENT
  Age: 68 Year
  Sex: Female

DRUGS (3)
  1. FLOVENT [Suspect]
     Indication: ASTHMA
     Dosage: 1PUFF PER DAY
     Route: 055
     Dates: start: 20031201, end: 20070501
  2. FORADIL [Concomitant]
  3. XOPENEX [Concomitant]

REACTIONS (3)
  - ERYTHEMA [None]
  - PRURITUS [None]
  - URTICARIA [None]
